FAERS Safety Report 20494210 (Version 7)
Quarter: 2022Q3

REPORT INFORMATION
  Report Type: Report from Study
  Country: CA (occurrence: CA)
  Receive Date: 20220221
  Receipt Date: 20220727
  Transmission Date: 20221026
  Serious: Yes (Hospitalization, Other)
  Sender: FDA-Public Use
  Company Number: CA-JNJFOC-20220235183

PATIENT
  Age: 29 Year
  Sex: Female
  Weight: 64 kg

DRUGS (1)
  1. REMICADE [Suspect]
     Active Substance: INFLIXIMAB
     Indication: Crohn^s disease
     Route: 042
     Dates: start: 20200408

REACTIONS (10)
  - Kidney infection [Recovered/Resolved]
  - Clostridium difficile infection [Unknown]
  - Sepsis [Unknown]
  - Deep vein thrombosis [Unknown]
  - Crohn^s disease [Unknown]
  - Urinary tract infection [Recovered/Resolved]
  - Malnutrition [Unknown]
  - Nausea [Unknown]
  - Diarrhoea [Unknown]
  - Drug ineffective [Unknown]

NARRATIVE: CASE EVENT DATE: 20211224
